FAERS Safety Report 8152332-1 (Version None)
Quarter: 2012Q1

REPORT INFORMATION
  Report Type: 
  Country: None (occurrence: None)
  Receive Date: 20120221
  Receipt Date: 20120214
  Transmission Date: 20120608
  Serious: Yes (Hospitalization, Disabling)
  Sender: FDA-Public Use
  Company Number: US-BAYER-201011770NA

PATIENT
  Age: 48 Year
  Sex: Female
  Weight: 56.689 kg

DRUGS (2)
  1. IBUPROFEN [IBUPROFEN SODIUM] [Concomitant]
     Dosage: UNK UNK, PRN
  2. YAZ [Suspect]
     Indication: PRODUCT USED FOR UNKNOWN INDICATION
     Dosage: 1 DF (DAILY DOSE), QD, ORAL
     Route: 048
     Dates: start: 20070601, end: 20080118

REACTIONS (1)
  - CEREBROVASCULAR ACCIDENT [None]
